FAERS Safety Report 12235154 (Version 1)
Quarter: 2016Q2

REPORT INFORMATION
  Report Type: Spontaneous
  Country: DE (occurrence: DE)
  Receive Date: 20160404
  Receipt Date: 20160404
  Transmission Date: 20160815
  Serious: Yes (Hospitalization)
  Sender: FDA-Public Use
  Company Number: DE-CONCORDIA PHARMACEUTICALS INC.-CO-DT-DE-2016-001

PATIENT
  Age: 75 Year
  Sex: Female

DRUGS (1)
  1. DUTOPROL [Suspect]
     Active Substance: HYDROCHLOROTHIAZIDE\METOPROLOL SUCCINATE
     Dosage: UNK
     Route: 048
     Dates: start: 1991

REACTIONS (5)
  - Hypertension [Unknown]
  - Sinus disorder [Unknown]
  - Cough [Recovered/Resolved]
  - Gastrointestinal disorder [Unknown]
  - Feeling hot [Unknown]
